FAERS Safety Report 5352285-5 (Version None)
Quarter: 2007Q2

REPORT INFORMATION
  Report Type: 
  Country: None (occurrence: None)
  Receive Date: 20070607
  Receipt Date: 20070607
  Transmission Date: 20071010
  Serious: Yes (Other)
  Sender: FDA-Public Use
  Company Number: None

PATIENT
  Age: 39 Year
  Sex: Male
  Weight: 90.7194 kg

DRUGS (2)
  1. CIPROFLOXACIN [Suspect]
     Indication: PROSTATE INFECTION
     Dosage: 500 MG 2X/DAY 20 DAYS PO
     Route: 048
     Dates: start: 20060310, end: 20060330
  2. LEVAQUIN [Suspect]
     Indication: PROSTATE INFECTION
     Dosage: 500 MG 1X/DAY 28 DAYS OROPHARINGEAL
     Route: 049
     Dates: start: 20051202, end: 20051230

REACTIONS (8)
  - ARTHRALGIA [None]
  - BLOOD CREATINE PHOSPHOKINASE INCREASED [None]
  - BURNING SENSATION [None]
  - HEADACHE [None]
  - JOINT CREPITATION [None]
  - MUSCLE SPASMS [None]
  - MUSCLE TWITCHING [None]
  - PARAESTHESIA [None]
